FAERS Safety Report 5598304-2 (Version None)
Quarter: 2008Q1

REPORT INFORMATION
  Report Type: 
  Country: None (occurrence: None)
  Receive Date: 20080122
  Receipt Date: 20080103
  Transmission Date: 20080703
  Serious: Yes (Other)
  Sender: FDA-Public Use
  Company Number: PHHY2008CA00690

PATIENT
  Age: 39 Year
  Sex: Male

DRUGS (5)
  1. CLOZARIL [Suspect]
     Indication: SCHIZOPHRENIA
     Dosage: 550 MG DAILY
     Route: 048
     Dates: start: 20011003
  2. ZYPREXA [Concomitant]
     Dosage: 20 MG
  3. EFFEXOR [Concomitant]
     Dosage: 225 MG
  4. ZOPICLONE [Concomitant]
     Dosage: 7.5 MG
  5. ALPRAZOLAM [Concomitant]
     Dosage: 1 MG

REACTIONS (1)
  - STRABISMUS [None]
